FAERS Safety Report 9931834 (Version 1)
Quarter: 2014Q1

REPORT INFORMATION
  Report Type: Spontaneous
  Country: US (occurrence: None)
  Receive Date: 20140227
  Receipt Date: 20140227
  Transmission Date: 20141002
  Serious: Yes (Disabling)
  Sender: FDA-Public Use
  Company Number: None

PATIENT
  Age: 39 Year
  Sex: Female
  Weight: 68.04 kg

DRUGS (1)
  1. ORTHO EVRA PATCH JANSSEN [Suspect]
     Indication: CONTRACEPTION
     Dosage: 1 PATCH, ONCE WEEKLY, APPLIED AS MEDICATED PATCH TO SKIN
     Route: 061
     Dates: start: 20140203, end: 20140223

REACTIONS (3)
  - Nausea [None]
  - Product lot number issue [None]
  - Product quality issue [None]
